FAERS Safety Report 7945043-6 (Version None)
Quarter: 2011Q4

REPORT INFORMATION
  Report Type: 
  Country: None (occurrence: None)
  Receive Date: 20111129
  Receipt Date: 20111122
  Transmission Date: 20120403
  Serious: Yes (Hospitalization)
  Sender: FDA-Public Use
  Company Number: CA-GENZYME-POMP-1001879

PATIENT
  Sex: Male

DRUGS (4)
  1. HYDROCORTISONE [Concomitant]
     Indication: PREMEDICATION
     Dosage: 25 MG, Q2W
     Route: 042
  2. MYOZYME [Suspect]
     Indication: GLYCOGEN STORAGE DISEASE TYPE II
     Dosage: 250 MG, Q2W
     Route: 042
     Dates: start: 20100201
  3. DIPHENHYDRAMINE HCL [Concomitant]
     Indication: PREMEDICATION
     Dosage: 10 MG, Q2W
     Route: 042
  4. ERYTHROMYCIN [Concomitant]
     Indication: PRODUCT USED FOR UNKNOWN INDICATION

REACTIONS (1)
  - GASTROINTESTINAL HAEMORRHAGE [None]
